FAERS Safety Report 19904280 (Version 1)
Quarter: 2021Q4

REPORT INFORMATION
  Report Type: Spontaneous
  Country: US (occurrence: US)
  Receive Date: 20211001
  Receipt Date: 20211001
  Transmission Date: 20220304
  Serious: No
  Sender: FDA-Public Use
  Company Number: US-PFIZER INC-202101090546

PATIENT
  Age: 33 Year
  Sex: Male
  Weight: 88.45 kg

DRUGS (1)
  1. NARDIL [Suspect]
     Active Substance: PHENELZINE SULFATE
     Indication: Depression
     Dosage: 45 MG, 2X/DAY (THREE TABLETS TWICE DAY, MORNING AND EVENING )
     Route: 048

REACTIONS (3)
  - Malabsorption [Not Recovered/Not Resolved]
  - Poor quality product administered [Not Recovered/Not Resolved]
  - Product coating issue [Not Recovered/Not Resolved]

NARRATIVE: CASE EVENT DATE: 20000101
